FAERS Safety Report 10994682 (Version 1)
Quarter: 2015Q2

REPORT INFORMATION
  Report Type: Spontaneous
  Country: FR (occurrence: FR)
  Receive Date: 20150407
  Receipt Date: 20150407
  Transmission Date: 20150821
  Serious: Yes (Hospitalization)
  Sender: FDA-Public Use
  Company Number: FR-PFIZER INC-2015114738

PATIENT
  Age: 63 Year
  Sex: Male

DRUGS (20)
  1. FLAGYL [Suspect]
     Active Substance: METRONIDAZOLE\METRONIDAZOLE HYDROCHLORIDE
     Dosage: 250 MG, DAILY
     Route: 048
     Dates: start: 20150115, end: 20150117
  2. KAYEXALATE [Concomitant]
     Active Substance: SODIUM POLYSTYRENE SULFONATE
     Dosage: 1 DF, 4 TIMES WEEKLY (ON TUESDAY, THURSDAY, SATURDAY AND SUNDAY)
     Route: 048
  3. PHOSPHOSORB [Concomitant]
     Dosage: 1320 MG, 3X/DAY (IN THE MORNING, AT LUNCH AND IN THE EVENING)
  4. TAZOCILLINE [Suspect]
     Active Substance: PIPERACILLIN SODIUM\TAZOBACTAM SODIUM
     Dosage: 4 G, DAILY
     Route: 042
     Dates: start: 20150115, end: 20150202
  5. VANCOMYCIN [Suspect]
     Active Substance: VANCOMYCIN
     Dosage: 1 G, DAILY
     Route: 042
     Dates: start: 20150115, end: 20150117
  6. CIFLOX [Suspect]
     Active Substance: CIPROFLOXACIN
     Dosage: UNK
     Route: 048
     Dates: start: 20150117, end: 20150204
  7. PREVISCAN [Concomitant]
     Active Substance: FLUINDIONE
     Dosage: 20 MG, DAILY
     Route: 048
  8. TENORMIN [Concomitant]
     Active Substance: ATENOLOL
     Dosage: 25 MG, DAILY
     Route: 048
  9. ARANESP [Concomitant]
     Active Substance: DARBEPOETIN ALFA
     Dosage: 40 ?G, MONTHLY
  10. KARDEGIC [Concomitant]
     Active Substance: ASPIRIN LYSINE
     Dosage: 75 MG, DAILY
     Route: 048
  11. SERETIDE [Concomitant]
     Active Substance: FLUTICASONE FUROATE\SALMETEROL XINAFOATE
     Dosage: 1 DF, 3X/DAY (IN THE MORNING, AT LUNCH AND IN THE EVENING)
  12. SPIRIVA [Concomitant]
     Active Substance: TIOTROPIUM BROMIDE MONOHYDRATE
     Dosage: 1 DF, 3X/DAY (IN THE MORNING, AT LUNCH AND IN THE EVENING)
  13. HUMALOG [Concomitant]
     Active Substance: INSULIN LISPRO
     Dosage: 20 IU, 3X/DAY
     Route: 058
  14. DALACINE [Suspect]
     Active Substance: CLINDAMYCIN HYDROCHLORIDE
     Dosage: UNK
     Dates: start: 20150117, end: 20150204
  15. TAHOR [Concomitant]
     Active Substance: ATORVASTATIN CALCIUM
     Dosage: 40 MG, DAILY
     Route: 048
  16. AIROMIR [Concomitant]
     Active Substance: ALBUTEROL SULFATE
     Dosage: 1 DF, 1X/DAY IN THE MORNING
  17. LEVEMIR [Concomitant]
     Active Substance: INSULIN DETEMIR
     Dosage: 30 IU, 2X/DAY
     Route: 058
  18. LASILIX [Concomitant]
     Active Substance: FUROSEMIDE
     Dosage: 1 G, DAILY
     Route: 048
  19. RENVELA [Concomitant]
     Active Substance: SEVELAMER CARBONATE
     Dosage: 2.4 G, 3X/DAY (IN THE MORNING, AT LUNCH AND IN THE EVENING)
  20. BACTRIM [Concomitant]
     Active Substance: SULFAMETHOXAZOLE\TRIMETHOPRIM
     Dosage: UNK
     Route: 048
     Dates: start: 20150117, end: 20150202

REACTIONS (6)
  - Rash maculo-papular [Recovered/Resolved]
  - Purpura [Recovered/Resolved]
  - Toxic skin eruption [Recovered/Resolved]
  - C-reactive protein increased [Recovered/Resolved]
  - Eosinophilia [Recovered/Resolved]
  - Conjunctivitis [Recovered/Resolved]

NARRATIVE: CASE EVENT DATE: 20150204
